FAERS Safety Report 21140084 (Version 6)
Quarter: 2022Q4

REPORT INFORMATION
  Report Type: Spontaneous
  Country: BR (occurrence: BR)
  Receive Date: 20220728
  Receipt Date: 20221006
  Transmission Date: 20230113
  Serious: Yes (Other)
  Sender: FDA-Public Use
  Company Number: BR-ABBVIE-22K-020-4300787-00

PATIENT
  Sex: Male
  Weight: 69 kg

DRUGS (4)
  1. RINVOQ [Suspect]
     Active Substance: UPADACITINIB
     Indication: Rheumatoid arthritis
     Dosage: 15 MILLIGRAM
     Route: 048
  2. CELECOXIB [Concomitant]
     Active Substance: CELECOXIB
     Indication: Rheumatoid arthritis
  3. CORTISONE [Concomitant]
     Active Substance: CORTISONE
     Indication: Rheumatoid arthritis
  4. Coques [Concomitant]
     Indication: Product used for unknown indication

REACTIONS (16)
  - Gallbladder operation [Recovering/Resolving]
  - Pain in extremity [Recovering/Resolving]
  - Groin pain [Recovering/Resolving]
  - Back pain [Recovering/Resolving]
  - Wound [Unknown]
  - Blood pressure increased [Not Recovered/Not Resolved]
  - Rheumatoid factor decreased [Unknown]
  - Feeling cold [Recovered/Resolved]
  - Pain [Not Recovered/Not Resolved]
  - Arthralgia [Not Recovered/Not Resolved]
  - COVID-19 [Recovered/Resolved]
  - Throat irritation [Recovered/Resolved]
  - Condition aggravated [Unknown]
  - Abdominal pain upper [Recovered/Resolved]
  - Rhinitis [Recovered/Resolved]
  - Drug ineffective [Not Recovered/Not Resolved]

NARRATIVE: CASE EVENT DATE: 20200101
